FAERS Safety Report 4541700-2 (Version None)
Quarter: 2004Q4

REPORT INFORMATION
  Report Type: 
  Country: None (occurrence: None)
  Receive Date: 20041227
  Receipt Date: 20041217
  Transmission Date: 20050328
  Serious: Yes (Hospitalization)
  Sender: FDA-Public Use
  Company Number: GBR-2004-0001308

PATIENT
  Age: 76 Year
  Sex: Male

DRUGS (8)
  1. OXYCONTIN [Suspect]
     Indication: BACK PAIN
     Dosage: SEE IMAGE
     Route: 048
     Dates: start: 20040511, end: 20040716
  2. OXYCONTIN [Suspect]
     Indication: BACK PAIN
     Dosage: SEE IMAGE
     Route: 048
     Dates: start: 20040301
  3. REMINYL [Suspect]
     Indication: DEMENTIA ALZHEIMER'S TYPE
     Dosage: 24 MG, DAILY, ORAL
     Route: 048
     Dates: start: 20040324
  4. PREVISCAN (FLUINDIONE) [Suspect]
     Indication: PULMONARY EMBOLISM
     Dosage: 20 MG, DAILY, ORAL
     Route: 048
     Dates: start: 20040201, end: 20041201
  5. OMEPRAZOLE [Suspect]
     Indication: HERNIA
     Dosage: 20 MG, DAILY, ORAL
     Route: 048
  6. LASILIX (FUROSEMIDE) [Suspect]
     Indication: CARDIAC FAILURE
     Dosage: 20 MG, DAILY, ORAL
     Route: 048
  7. TRANSIPEG (MACROGOL) [Suspect]
     Indication: CONSTIPATION
     Dosage: 5.9 GRAM, DAILY, ORAL
     Route: 048
  8. TIAPRIDAL (TIAPRIDAL) [Suspect]
     Indication: AGITATION
     Dosage: 2.5 MG, DAILY, ORAL
     Route: 048
     Dates: start: 20040201

REACTIONS (6)
  - DEHYDRATION [None]
  - INTERNATIONAL NORMALISED RATIO INCREASED [None]
  - LOSS OF CONSCIOUSNESS [None]
  - MENINGORRHAGIA [None]
  - PROTHROMBIN TIME PROLONGED [None]
  - RESPIRATORY DEPRESSION [None]
